FAERS Safety Report 21450334 (Version 1)
Quarter: 2022Q4

REPORT INFORMATION
  Report Type: Spontaneous
  Country: TR (occurrence: TR)
  Receive Date: 20221013
  Receipt Date: 20221013
  Transmission Date: 20230113
  Serious: Yes (Hospitalization)
  Sender: FDA-Public Use
  Company Number: TR-JNJFOC-20221013289

PATIENT
  Age: 33 Year
  Sex: Male

DRUGS (6)
  1. RISPERDAL CONSTA [Suspect]
     Active Substance: RISPERIDONE
     Indication: Schizoaffective disorder
     Dosage: IRREGULAR
     Route: 065
  2. RISPERDAL CONSTA [Suspect]
     Active Substance: RISPERIDONE
  3. RISPERDAL CONSTA [Suspect]
     Active Substance: RISPERIDONE
  4. RISPERDAL CONSTA [Suspect]
     Active Substance: RISPERIDONE
  5. VALPROATE SODIUM [Suspect]
     Active Substance: VALPROATE SODIUM
     Indication: Schizoaffective disorder
     Dosage: 3*1 (REGULAR)
     Route: 065
  6. QUETIAPINE FUMARATE [Suspect]
     Active Substance: QUETIAPINE FUMARATE
     Indication: Schizoaffective disorder
     Route: 065

REACTIONS (5)
  - Schizoaffective disorder [Recovered/Resolved]
  - Treatment noncompliance [Recovered/Resolved]
  - Insomnia [Recovered/Resolved]
  - Mania [Recovered/Resolved]
  - Psychomotor hyperactivity [Recovered/Resolved]
